FAERS Safety Report 8970833 (Version 1)
Quarter: 2012Q4

REPORT INFORMATION
  Report Type: 
  Country: US (occurrence: US)
  Receive Date: 20121218
  Receipt Date: 20121218
  Transmission Date: 20130627
  Serious: No
  Sender: FDA-Public Use
  Company Number: US-MYLANLABS-2012S1018497

PATIENT
  Age: 52 Year
  Sex: Female
  Weight: 71.67 kg

DRUGS (5)
  1. LATANOPROST [Suspect]
     Indication: GLAUCOMA
     Route: 047
     Dates: start: 201103, end: 201110
  2. LATANOPROST [Suspect]
     Indication: GLAUCOMA
     Route: 047
     Dates: start: 201110, end: 201201
  3. ALLEGRA D [Concomitant]
  4. ISOFLAV [Concomitant]
  5. GLUCOSAMINE + CHONDROITIN /01430901/ [Concomitant]

REACTIONS (9)
  - Visual acuity reduced [Not Recovered/Not Resolved]
  - Apraxia [Recovered/Resolved]
  - Ocular hyperaemia [Recovered/Resolved]
  - Dry eye [Recovered/Resolved]
  - Eye irritation [Recovered/Resolved]
  - Eyelid pain [Recovered/Resolved]
  - Eyelids pruritus [Recovered/Resolved]
  - Skin discolouration [Recovered/Resolved]
  - Visual field defect [Recovered/Resolved]
